FAERS Safety Report 9606024 (Version 1)
Quarter: 2013Q4

REPORT INFORMATION
  Report Type: Spontaneous
  Country: US (occurrence: US)
  Receive Date: 20131008
  Receipt Date: 20131008
  Transmission Date: 20140711
  Serious: No
  Sender: FDA-Public Use
  Company Number: US-AMGEN-USASP2013039665

PATIENT
  Sex: Female

DRUGS (11)
  1. PROLIA [Suspect]
     Indication: OSTEOPOROSIS POSTMENOPAUSAL
     Dosage: UNK
     Dates: start: 20130214
  2. METOPROLOL [Concomitant]
  3. LASIX                              /00032601/ [Concomitant]
  4. ECOTRIN [Concomitant]
  5. DEXILANT [Concomitant]
  6. PROBIOTIC                          /06395501/ [Concomitant]
  7. NORVASC [Concomitant]
  8. CITRACAL                           /00751520/ [Concomitant]
  9. VITAMIN D3 [Concomitant]
  10. MAGINEX [Concomitant]
  11. ATACAND [Concomitant]

REACTIONS (5)
  - Hypoaesthesia [Unknown]
  - Contusion [Unknown]
  - Abdominal pain [Unknown]
  - Muscle spasms [Unknown]
  - Back pain [Unknown]
